FAERS Safety Report 7343170-8 (Version None)
Quarter: 2011Q1

REPORT INFORMATION
  Report Type: 
  Country: None (occurrence: None)
  Receive Date: 20110310
  Receipt Date: 20110224
  Transmission Date: 20110831
  Serious: Yes (Hospitalization, Other)
  Sender: FDA-Public Use
  Company Number: PHHY2010BR50690

PATIENT
  Sex: Male

DRUGS (7)
  1. DIOVAN [Suspect]
     Dosage: 160 MG DAILY
     Route: 048
  2. SINVACOR [Concomitant]
     Indication: CARDIAC DISORDER
     Dosage: 40 MG/ONE TABLET DAILY
     Route: 048
  3. EUTHYROX [Concomitant]
     Indication: HYPOTHYROIDISM
     Dosage: 100 MCG  1 TABLET DAILY
     Route: 048
  4. AAS [Concomitant]
     Indication: CARDIAC DISORDER
     Dosage: 100 MG 1 TABLET DAILY
     Route: 048
  5. OMEPRAZOLE [Concomitant]
     Indication: ABDOMINAL DISCOMFORT
     Dosage: 40 MG, 1 TABLET DAILY
     Route: 048
  6. DIOVAN [Suspect]
     Indication: HYPERTENSION
     Dosage: 80 MG (1 TABLET DAILY)
     Route: 048
  7. CONCOR [Concomitant]
     Indication: CARDIAC DISORDER
     Dosage: 10 MG  1 TABLET DAILY
     Route: 048

REACTIONS (3)
  - ABDOMINAL PAIN [None]
  - BLOOD PRESSURE INCREASED [None]
  - VENOUS OCCLUSION [None]
